FAERS Safety Report 5135708-6 (Version None)
Quarter: 2006Q4

REPORT INFORMATION
  Report Type: 
  Country: None (occurrence: None)
  Receive Date: 20061024
  Receipt Date: 20061024
  Transmission Date: 20070319
  Serious: Yes (Hospitalization)
  Sender: FDA-Public Use
  Company Number: None

PATIENT
  Age: 39 Year
  Sex: Male
  Weight: 106.1417 kg

DRUGS (5)
  1. ALEVE [Suspect]
     Indication: TENDONITIS
  2. METFORMIN HCL [Concomitant]
  3. MULTIVIT [Concomitant]
  4. BITTER MELON [Concomitant]
  5. GLUCOSAMINE [Concomitant]

REACTIONS (2)
  - BODY TEMPERATURE INCREASED [None]
  - ERYTHEMA MULTIFORME [None]
